FAERS Safety Report 17511098 (Version 2)
Quarter: 2020Q2

REPORT INFORMATION
  Report Type: Report from Study
  Country: US (occurrence: US)
  Receive Date: 20200306
  Receipt Date: 20200520
  Transmission Date: 20200713
  Serious: Yes (Other)
  Sender: FDA-Public Use
  Company Number: US-HARMONY BIOSCIENCES-2020HMY00001

PATIENT
  Age: 56 Year
  Sex: Female
  Weight: 90.7 kg

DRUGS (18)
  1. EXTENDED RELEASE AMPHETAMINE SALTS [Concomitant]
     Dosage: 30 MG, 2X/DAY
  2. OMEPRAZOLE. [Concomitant]
     Active Substance: OMEPRAZOLE
  3. TIZANIDINE. [Concomitant]
     Active Substance: TIZANIDINE
  4. VITAMIN B [Concomitant]
     Active Substance: VITAMIN B
  5. PRISTIQ EXTENDED-RELEASE [Concomitant]
     Active Substance: DESVENLAFAXINE SUCCINATE
  6. IMMEDIATE RELEASE AMPHETAMINE/DEXTROAMPHETAMINE [Concomitant]
     Dosage: 10 MG, 2X/DAY
  7. UNSPECIFIED SUPPLMENTS [Concomitant]
  8. WAKIX [Suspect]
     Active Substance: PITOLISANT HYDROCHLORIDE
     Indication: SOMNOLENCE
     Dosage: 35.6 MG, 1X/DAY
     Route: 048
     Dates: start: 20200105, end: 202003
  9. WAKIX [Suspect]
     Active Substance: PITOLISANT HYDROCHLORIDE
     Indication: NARCOLEPSY
  10. LYRICA [Concomitant]
     Active Substance: PREGABALIN
  11. FISH OIL [Concomitant]
     Active Substance: FISH OIL
  12. VITAMIN C [Concomitant]
     Active Substance: ASCORBIC ACID
  13. VITAMIN D [Concomitant]
     Active Substance: VITAMIN D NOS
  14. CHANTIX [Concomitant]
     Active Substance: VARENICLINE TARTRATE
  15. WAKIX [Suspect]
     Active Substance: PITOLISANT HYDROCHLORIDE
     Indication: SOMNOLENCE
     Dosage: 8.9 MG, 1X/DAY
     Route: 048
     Dates: start: 20191203, end: 20200104
  16. WAKIX [Suspect]
     Active Substance: PITOLISANT HYDROCHLORIDE
     Indication: NARCOLEPSY
  17. ABILIFY [Concomitant]
     Active Substance: ARIPIPRAZOLE
  18. MELOXICAM. [Concomitant]
     Active Substance: MELOXICAM

REACTIONS (4)
  - Drug ineffective [Recovered/Resolved]
  - Diabetes mellitus [Not Recovered/Not Resolved]
  - Somnolence [Unknown]
  - Fatigue [Unknown]

NARRATIVE: CASE EVENT DATE: 2019
